FAERS Safety Report 8623250-7 (Version None)
Quarter: 2012Q3

REPORT INFORMATION
  Report Type: 
  Country: None (occurrence: None)
  Receive Date: 20120827
  Receipt Date: 20120818
  Transmission Date: 20120928
  Serious: Yes (Hospitalization)
  Sender: FDA-Public Use
  Company Number: US-US-EMD SERONO, INC.-7155924

PATIENT
  Sex: Female

DRUGS (2)
  1. REBIF [Suspect]
     Indication: MULTIPLE SCLEROSIS
     Route: 058
     Dates: start: 20100727
  2. REBIF [Suspect]
     Route: 058

REACTIONS (9)
  - DIARRHOEA [None]
  - INFLUENZA LIKE ILLNESS [None]
  - HYPERTENSION [None]
  - INJECTION SITE ERYTHEMA [None]
  - NAUSEA [None]
  - DEPRESSION [None]
  - FIBROMYALGIA [None]
  - CONSTIPATION [None]
  - FATIGUE [None]
